FAERS Safety Report 26080877 (Version 1)
Quarter: 2025Q4

REPORT INFORMATION
  Report Type: Spontaneous
  Country: EU (occurrence: EU)
  Receive Date: 20251124
  Receipt Date: 20251124
  Transmission Date: 20260118
  Serious: Yes (Life-Threatening, Hospitalization, Other)
  Sender: UNICHEM
  Company Number: EU-UNICHEM LABORATORIES LIMITED-UNI-2025-NL-003809

PATIENT

DRUGS (1)
  1. AMIODARONE [Suspect]
     Active Substance: AMIODARONE
     Indication: Arrhythmia
     Dosage: UNK
     Route: 065

REACTIONS (4)
  - Ventricular tachycardia [Recovering/Resolving]
  - Thyrotoxic crisis [Recovering/Resolving]
  - Hyperthyroidism [Recovering/Resolving]
  - Hypotension [Recovering/Resolving]
